FAERS Safety Report 7454733-3 (Version None)
Quarter: 2011Q2

REPORT INFORMATION
  Report Type: 
  Country: None (occurrence: None)
  Receive Date: 20110503
  Receipt Date: 20100426
  Transmission Date: 20111010
  Serious: No
  Sender: FDA-Public Use
  Company Number: US-PFIZER INC-2010053391

PATIENT
  Sex: Female
  Weight: 51 kg

DRUGS (3)
  1. AMOXICILLIN [Suspect]
     Dosage: , DAILY
     Dates: start: 20100413
  2. PROVERA [Suspect]
     Dosage: 500 MG, DAILY
  3. PREMARIN [Suspect]
     Dosage: UNK

REACTIONS (2)
  - FUNGAL INFECTION [None]
  - DIARRHOEA [None]
